FAERS Safety Report 4890613-5 (Version None)
Quarter: 2006Q1

REPORT INFORMATION
  Report Type: 
  Country: None (occurrence: None)
  Receive Date: 20060125
  Receipt Date: 20051214
  Transmission Date: 20060701
  Serious: Yes (Hospitalization, Other)
  Sender: FDA-Public Use
  Company Number: PHRM2005FR03292

PATIENT
  Age: 48 Year
  Sex: Female
  Weight: 57 kg

DRUGS (2)
  1. LAMISIL [Suspect]
     Indication: NAIL TINEA
     Dosage: 250 MG, QD
     Route: 048
     Dates: start: 20051028, end: 20051213
  2. LUTENYL [Concomitant]
     Dosage: 5 MG, QD
     Route: 048
     Dates: start: 20010101

REACTIONS (8)
  - BLOOD CHLORIDE INCREASED [None]
  - ECCHYMOSIS [None]
  - HAEMATOMA [None]
  - MEAN PLATELET VOLUME DECREASED [None]
  - METRORRHAGIA [None]
  - PETECHIAE [None]
  - PROTEIN TOTAL DECREASED [None]
  - THROMBOCYTOPENIA [None]
